FAERS Safety Report 20638292 (Version 1)
Quarter: 2022Q1

REPORT INFORMATION
  Report Type: Spontaneous
  Country: US (occurrence: None)
  Receive Date: 20220325
  Receipt Date: 20220325
  Transmission Date: 20220423
  Serious: Yes (unspecified)
  Sender: FDA-Public Use
  Company Number: None

PATIENT
  Age: 51 Year
  Sex: Female
  Weight: 67.5 kg

DRUGS (2)
  1. RHOFADE [Suspect]
     Active Substance: OXYMETAZOLINE HYDROCHLORIDE
     Indication: Rosacea
     Dosage: OTHER QUANTITY : 1 DROP(S);?
     Route: 061
     Dates: start: 20220318, end: 20220321
  2. VITAMINS [Concomitant]
     Active Substance: VITAMINS

REACTIONS (5)
  - Application site pain [None]
  - Application site erythema [None]
  - Application site warmth [None]
  - Skin disorder [None]
  - Rosacea [None]

NARRATIVE: CASE EVENT DATE: 20220323
